FAERS Safety Report 16979560 (Version 2)
Quarter: 2019Q4

REPORT INFORMATION
  Report Type: Spontaneous
  Country: ZA (occurrence: ZA)
  Receive Date: 20191031
  Receipt Date: 20191227
  Transmission Date: 20200122
  Serious: No
  Sender: FDA-Public Use
  Company Number: ZA-ASTRAZENECA-2019SF52724

PATIENT
  Age: 40 Year
  Sex: Female

DRUGS (1)
  1. FORXIGA [Suspect]
     Active Substance: DAPAGLIFLOZIN
     Indication: WEIGHT DECREASED
     Dosage: 10.0MG UNKNOWN
     Route: 048

REACTIONS (1)
  - Product use in unapproved indication [Unknown]
